FAERS Safety Report 17720375 (Version 1)
Quarter: 2020Q2

REPORT INFORMATION
  Report Type: Spontaneous
  Country: AT (occurrence: AT)
  Receive Date: 20200428
  Receipt Date: 20200428
  Transmission Date: 20200714
  Serious: Yes (Other)
  Sender: FDA-Public Use
  Company Number: AT-009507513-2004AUT006394

PATIENT
  Age: 55 Year
  Sex: Female
  Weight: 51 kg

DRUGS (3)
  1. KEYTRUDA [Suspect]
     Active Substance: PEMBROLIZUMAB
     Indication: BRONCHIAL CARCINOMA
     Dosage: 200 MILLIGRAM. STRENGHT 25 MG/ML
     Route: 042
     Dates: start: 20191128, end: 20200127
  2. CISPLATIN. [Concomitant]
     Active Substance: CISPLATIN
     Indication: BRONCHIAL CARCINOMA
     Dosage: 500 MILLIGRAM/SQ. METER (ALSO REPORTED AS: 767 MG)
     Dates: start: 20191128, end: 20200127
  3. PEMETREXED DISODIUM [Concomitant]
     Active Substance: PEMETREXED DISODIUM
     Indication: BRONCHIAL CARCINOMA
     Dosage: 75 MILLIGRAM/SQ. METER. (ALSO REPORTED AS: 115 MG)
     Dates: start: 20191128, end: 20200127

REACTIONS (4)
  - Arthritis [Not Recovered/Not Resolved]
  - Joint warmth [Not Recovered/Not Resolved]
  - Joint swelling [Not Recovered/Not Resolved]
  - Arthralgia [Not Recovered/Not Resolved]

NARRATIVE: CASE EVENT DATE: 202002
